FAERS Safety Report 13128997 (Version 1)
Quarter: 2017Q1

REPORT INFORMATION
  Report Type: Spontaneous
  Country: CA (occurrence: CA)
  Receive Date: 20170119
  Receipt Date: 20170119
  Transmission Date: 20170428
  Serious: Yes (Other)
  Sender: FDA-Public Use
  Company Number: CA-CONCORDIA PHARMACEUTICALS INC.-GSH201701-000498

PATIENT
  Age: 66 Year
  Sex: Female

DRUGS (25)
  1. ATENOLOL. [Concomitant]
     Active Substance: ATENOLOL
  2. LORATADINE. [Concomitant]
     Active Substance: LORATADINE
  3. CLOPIDOGREL BISULFATE. [Concomitant]
     Active Substance: CLOPIDOGREL BISULFATE
  4. PLAQUENIL [Suspect]
     Active Substance: HYDROXYCHLOROQUINE SULFATE
     Indication: PRODUCT USED FOR UNKNOWN INDICATION
     Route: 065
  5. IMOVANE [Concomitant]
     Active Substance: ZOPICLONE
  6. CIPRALEX [Concomitant]
     Active Substance: ESCITALOPRAM OXALATE
  7. HYDROCHLOROTHIAZIDE IRBESARTAN [Concomitant]
  8. OMNARIS [Concomitant]
     Active Substance: CICLESONIDE
  9. EFFEXOR [Concomitant]
     Active Substance: VENLAFAXINE HYDROCHLORIDE
  10. METHOTREXATE. [Suspect]
     Active Substance: METHOTREXATE
     Indication: RHEUMATOID ARTHRITIS
     Dosage: 2.5 MILLIGRAM(S);WEEKLY
     Route: 065
  11. LIPITOR [Concomitant]
     Active Substance: ATORVASTATIN CALCIUM
  12. MYRBETRIQ [Concomitant]
     Active Substance: MIRABEGRON
  13. CYANOCOBALAMIN. [Concomitant]
     Active Substance: CYANOCOBALAMIN
  14. IRBESARTAN. [Concomitant]
     Active Substance: IRBESARTAN
  15. DOCUSATE SODIUM. [Concomitant]
     Active Substance: DOCUSATE SODIUM
  16. ENBREL [Suspect]
     Active Substance: ETANERCEPT
     Indication: RHEUMATOID ARTHRITIS
     Dosage: 50 MILLIGRAM(S); WEEKLY
     Route: 065
     Dates: start: 20140301, end: 201510
  17. FOLIC ACID. [Concomitant]
     Active Substance: FOLIC ACID
  18. VESICARE [Concomitant]
     Active Substance: SOLIFENACIN SUCCINATE
  19. ENBREL [Suspect]
     Active Substance: ETANERCEPT
     Route: 065
     Dates: start: 201511, end: 201608
  20. ENBREL [Suspect]
     Active Substance: ETANERCEPT
     Dates: start: 2016
  21. METHOTREXATE. [Suspect]
     Active Substance: METHOTREXATE
     Route: 065
  22. NITROGLYCERIN. [Concomitant]
     Active Substance: NITROGLYCERIN
  23. PLAVIX [Concomitant]
     Active Substance: CLOPIDOGREL BISULFATE
  24. ASPIRIN. [Concomitant]
     Active Substance: ASPIRIN
  25. ESCITALOPRAM OXALATE. [Concomitant]
     Active Substance: ESCITALOPRAM OXALATE

REACTIONS (3)
  - Fatigue [Not Recovered/Not Resolved]
  - Diarrhoea [Recovered/Resolved]
  - Urinary tract infection [Not Recovered/Not Resolved]
